FAERS Safety Report 15417176 (Version 2)
Quarter: 2018Q4

REPORT INFORMATION
  Report Type: Spontaneous
  Country: US (occurrence: US)
  Receive Date: 20180924
  Receipt Date: 20181120
  Transmission Date: 20190204
  Serious: Yes (Hospitalization)
  Sender: FDA-Public Use
  Company Number: US-ASTRAZENECA-2018SF20079

PATIENT
  Age: 6202 Day
  Sex: Male

DRUGS (16)
  1. DULERA [Concomitant]
     Active Substance: FORMOTEROL FUMARATE DIHYDRATE\MOMETASONE FUROATE
     Dosage: 200/5, UNKNOWN
     Route: 065
  2. SINGULAIR [Concomitant]
     Active Substance: MONTELUKAST SODIUM
     Route: 048
  3. ZYRTEC [Concomitant]
     Active Substance: CETIRIZINE HYDROCHLORIDE
     Dosage: 10.0MG UNKNOWN
     Route: 065
  4. ADVAIR HFA [Concomitant]
     Active Substance: FLUTICASONE PROPIONATE\SALMETEROL XINAFOATE
     Dosage: 2 PUFF 2 TIMES A DAY
     Route: 055
     Dates: start: 20180807, end: 20180906
  5. OMALIZUMAB. [Concomitant]
     Active Substance: OMALIZUMAB
  6. SINGULAIR [Concomitant]
     Active Substance: MONTELUKAST SODIUM
     Route: 048
  7. VENTOLIN HFA [Concomitant]
     Active Substance: ALBUTEROL SULFATE
     Route: 055
  8. IBUPROFEN. [Concomitant]
     Active Substance: IBUPROFEN
     Route: 048
     Dates: start: 20180807, end: 20180906
  9. BECLOMETHASONE [Concomitant]
     Active Substance: BECLOMETHASONE
     Dosage: 1 PUFF 2 TIMES A DAY
     Route: 045
  10. METHYLPREDNISOLONE. [Concomitant]
     Active Substance: METHYLPREDNISOLONE
     Dosage: EVERY 6 HR
     Dates: start: 20180807, end: 20180810
  11. PATANOL [Concomitant]
     Active Substance: OLOPATADINE HYDROCHLORIDE
     Dosage: UNKNOWN
     Route: 065
  12. FASENRA [Suspect]
     Active Substance: BENRALIZUMAB
     Indication: ASTHMA
     Route: 058
     Dates: start: 20180717
  13. VENTOLIN HFA [Concomitant]
     Active Substance: ALBUTEROL SULFATE
     Dosage: 50 MG CONTINUS 15 MG/HR + 40 ML NEBULIZE 12 ML/HR
     Route: 055
     Dates: start: 20180807, end: 20180906
  14. PEPCID [Concomitant]
     Active Substance: FAMOTIDINE
     Dosage: EVERY 12 HR
     Route: 048
     Dates: start: 20180807, end: 20180906
  15. ACETAMINOPHEN. [Concomitant]
     Active Substance: ACETAMINOPHEN
     Dosage: EVERY 6 HR PRN
     Route: 048
     Dates: start: 20180807, end: 20180906
  16. LORATADINE. [Concomitant]
     Active Substance: LORATADINE
     Dosage: DAILY
     Route: 048
     Dates: start: 20180807, end: 20180906

REACTIONS (6)
  - Rhinovirus infection [Unknown]
  - Respiratory failure [Recovered/Resolved]
  - Treatment noncompliance [Unknown]
  - Status asthmaticus [Recovered/Resolved]
  - Myalgia [Unknown]
  - Rhinorrhoea [Unknown]

NARRATIVE: CASE EVENT DATE: 20180804
